FAERS Safety Report 10174831 (Version 1)
Quarter: 2014Q2

REPORT INFORMATION
  Report Type: Spontaneous
  Country: US (occurrence: US)
  Receive Date: 20140515
  Receipt Date: 20140515
  Transmission Date: 20141212
  Serious: No
  Sender: FDA-Public Use
  Company Number: US-TEVA-481388USA

PATIENT
  Sex: Female

DRUGS (1)
  1. OXYBUTYNIN [Suspect]

REACTIONS (4)
  - Drug withdrawal syndrome [Unknown]
  - Nausea [Unknown]
  - Malaise [Unknown]
  - Drug ineffective [Unknown]
